FAERS Safety Report 7699415-8 (Version None)
Quarter: 2011Q3

REPORT INFORMATION
  Report Type: 
  Country: None (occurrence: None)
  Receive Date: 20110820
  Receipt Date: 20110712
  Transmission Date: 20111222
  Serious: Yes (Other)
  Sender: FDA-Public Use
  Company Number: PHHY2011KR65771

PATIENT

DRUGS (6)
  1. CARBAMAZEPINE [Suspect]
     Dosage: UNK UKN, UNK
  2. HYDROXYZINE [Concomitant]
     Dosage: UNK UKN, UNK
  3. CLONAZEPAM [Concomitant]
     Dosage: UNK UKN, UNK
  4. DEPAKOTE [Concomitant]
     Dosage: UNK UKN, UNK
  5. KETOROLAC TROMETHAMINE [Concomitant]
     Dosage: UNK UKN, UNK
  6. DOXOFYLLINE [Concomitant]
     Dosage: UNK UKN, UNK

REACTIONS (4)
  - PYREXIA [None]
  - COUGH [None]
  - INSOMNIA [None]
  - RELAPSING FEVER [None]
